FAERS Safety Report 7747544-2 (Version None)
Quarter: 2011Q3

REPORT INFORMATION
  Report Type: 
  Country: None (occurrence: None)
  Receive Date: 20110913
  Receipt Date: 20110912
  Transmission Date: 20111222
  Serious: No
  Sender: FDA-Public Use
  Company Number: US-PFIZER INC-2011214688

PATIENT
  Sex: Female
  Weight: 108.84 kg

DRUGS (12)
  1. XANAX [Suspect]
     Indication: PANIC ATTACK
  2. ADDERALL 5 [Concomitant]
     Dosage: 15 MG, 3X/DAY
  3. NEXIUM [Concomitant]
     Dosage: 40 MG, 2X/DAY
  4. METFORMIN [Concomitant]
     Dosage: 1000 MG, 2X/DAY
  5. SEROQUEL [Concomitant]
     Dosage: 30 MG, 2X/DAY
  6. SYNTHROID [Concomitant]
     Dosage: 50 MG, 1X/DAY
  7. XANAX [Suspect]
     Indication: ANXIETY
     Dosage: 1 MG, 3X/DAY
     Route: 048
     Dates: start: 20050101, end: 20060101
  8. LISINOPRIL [Concomitant]
     Dosage: 5 MG, 1X/DAY
  9. TOPAMAX [Concomitant]
     Dosage: 50 MG, 2X/DAY
  10. CYMBALTA [Concomitant]
     Dosage: 90 MG, 1X/DAY
  11. STRATTERA [Concomitant]
     Dosage: 60 MG, 1X/DAY
  12. LOVASTATIN [Concomitant]
     Dosage: 20 MG, 2X/DAY

REACTIONS (1)
  - DRUG INEFFECTIVE [None]
